FAERS Safety Report 4700571-1 (Version None)
Quarter: 2005Q2

REPORT INFORMATION
  Report Type: 
  Country: None (occurrence: None)
  Receive Date: 20050627
  Receipt Date: 20050615
  Transmission Date: 20051028
  Serious: Yes (Hospitalization, Other)
  Sender: FDA-Public Use
  Company Number: HQWYE077618APR05

PATIENT
  Age: 66 Year
  Sex: Male

DRUGS (4)
  1. MINOCYCLINE HCL [Suspect]
     Indication: INFECTION PROPHYLAXIS
     Dosage: 200 MG DAILY ORAL
     Route: 048
     Dates: start: 20050311, end: 20050328
  2. FLOMOX (CEFCAPENE PIVOXIL HYDROCHLORIDE,) [Suspect]
     Indication: NASOPHARYNGITIS
     Dosage: 300 MG DAILY ORAL
     Route: 048
     Dates: start: 20050325, end: 20050330
  3. LOXONIN (LOXOPROFEN SODIUM) [Concomitant]
  4. OSELTAMIVIR (OSELTAMIVIR) [Concomitant]

REACTIONS (5)
  - GENERALISED OEDEMA [None]
  - INTERSTITIAL LUNG DISEASE [None]
  - PANCREATITIS ACUTE [None]
  - PLEURAL EFFUSION [None]
  - RASH [None]
